FAERS Safety Report 16589162 (Version 1)
Quarter: 2019Q3

REPORT INFORMATION
  Report Type: Other
  Country: IT (occurrence: IT)
  Receive Date: 20190718
  Receipt Date: 20190718
  Transmission Date: 20191004
  Serious: Yes (Other)
  Sender: FDA-Public Use
  Company Number: IT-BIODELIVERY SCIENCES INTERNATIONAL-2019BDSI0600

PATIENT
  Age: 13 Year
  Sex: Male

DRUGS (5)
  1. FENTANYL CITRATE. [Suspect]
     Active Substance: FENTANYL CITRATE
     Indication: PAIN
     Route: 065
  2. KETAMINE [Concomitant]
     Active Substance: KETAMINE
     Indication: PRODUCT USED FOR UNKNOWN INDICATION
  3. MORPHINE [Suspect]
     Active Substance: MORPHINE
     Indication: PAIN
     Dosage: 20 MICROGRAM/KILOGRAM
     Route: 037
  4. MORPHINE [Suspect]
     Active Substance: MORPHINE
     Dosage: 2 MG/ML WITH A LOCK-OUT TIME OF 20 MINUTES
     Route: 040
  5. BACLOFEN. [Suspect]
     Active Substance: BACLOFEN
     Indication: SCOLIOSIS
     Route: 037

REACTIONS (3)
  - Drug interaction [Unknown]
  - Sedation complication [Unknown]
  - Respiratory depression [Unknown]
